FAERS Safety Report 4331365-7 (Version None)
Quarter: 2004Q1

REPORT INFORMATION
  Report Type: 
  Country: None (occurrence: None)
  Receive Date: 20040331
  Receipt Date: 20040319
  Transmission Date: 20041129
  Serious: Yes (Other)
  Sender: FDA-Public Use
  Company Number: GB-JNJFOC-20040304458

PATIENT
  Age: 49 Year
  Sex: Female
  Weight: 70 kg

DRUGS (5)
  1. REMICADE [Suspect]
     Indication: VASCULITIS NECROTISING
     Dosage: 5 MG/KG, INTRAVENOUS
     Route: 042
     Dates: start: 20040212, end: 20040212
  2. PREDNISOLONE [Concomitant]
  3. ASPIRIN [Concomitant]
  4. QUININE [Concomitant]
  5. CALCICHEW D3 (CALCIUM CARBONATE) [Concomitant]

REACTIONS (9)
  - ABDOMINAL PAIN [None]
  - ARTHRALGIA [None]
  - DIARRHOEA [None]
  - DISEASE RECURRENCE [None]
  - FATIGUE [None]
  - LETHARGY [None]
  - LUPUS-LIKE SYNDROME [None]
  - MOUTH ULCERATION [None]
  - VIRAL INFECTION [None]
